FAERS Safety Report 16398948 (Version 1)
Quarter: 2019Q2

REPORT INFORMATION
  Report Type: Spontaneous
  Country: AU (occurrence: AU)
  Receive Date: 20190606
  Receipt Date: 20190606
  Transmission Date: 20190711
  Serious: Yes (Other)
  Sender: FDA-Public Use
  Company Number: AU-MYLANLABS-2019M1053795

PATIENT
  Age: 65 Year
  Sex: Male

DRUGS (18)
  1. AZATHIOPRINE. [Suspect]
     Active Substance: AZATHIOPRINE
     Indication: IMMUNOSUPPRESSANT DRUG THERAPY
     Dosage: 75 MILLIGRAM, QD
     Route: 065
  2. ROSUVASTATIN. [Concomitant]
     Active Substance: ROSUVASTATIN
     Indication: PRODUCT USED FOR UNKNOWN INDICATION
     Route: 065
  3. VALSARTAN. [Concomitant]
     Active Substance: VALSARTAN
     Indication: PRODUCT USED FOR UNKNOWN INDICATION
     Route: 065
  4. AZATHIOPRINE. [Suspect]
     Active Substance: AZATHIOPRINE
     Dosage: 75 MILLIGRAM, QD
     Route: 065
     Dates: start: 201409, end: 201412
  5. BENZYLPENICILLIN [Suspect]
     Active Substance: PENICILLIN G
     Indication: NEUROSYPHILIS
     Dosage: HIGH-DOSE; DURING FIRST ADMISSION
     Route: 042
  6. BENZYLPENICILLIN [Suspect]
     Active Substance: PENICILLIN G
     Indication: OPTIC NEUROPATHY
     Dosage: SECOND COURSE DURING SECOND ADMISSION [DOSAGE NOT STATED]
     Route: 042
     Dates: start: 201407
  7. PREDNISOLONE. [Suspect]
     Active Substance: PREDNISOLONE
     Indication: PROPHYLAXIS
     Dosage: 50 MILLIGRAM, QD
     Route: 048
  8. CEFTRIAXONE. [Suspect]
     Active Substance: CEFTRIAXONE
     Indication: NEUROSYPHILIS
     Dosage: 2 GRAM, QD
     Route: 042
  9. PREDNISOLONE. [Suspect]
     Active Substance: PREDNISOLONE
     Indication: IMMUNOSUPPRESSANT DRUG THERAPY
     Dosage: DISCHARGE DOSE FOLLOWING SECOND ADMISSION
     Route: 048
  10. PREDNISOLONE. [Suspect]
     Active Substance: PREDNISOLONE
     Dosage: 75 MILLIGRAM, QD
     Route: 048
     Dates: end: 201412
  11. OCTAGAM IMMUNE GLOBULIN (HUMAN) [Suspect]
     Active Substance: HUMAN IMMUNOGLOBULIN G
     Indication: NEUROSYPHILIS
     Route: 042
     Dates: start: 201408
  12. AMLODIPINE [Concomitant]
     Active Substance: AMLODIPINE BESYLATE
     Indication: PRODUCT USED FOR UNKNOWN INDICATION
     Route: 065
  13. CEFTRIAXONE. [Suspect]
     Active Substance: CEFTRIAXONE
     Indication: OPTIC NEUROPATHY
  14. OCTAGAM IMMUNE GLOBULIN (HUMAN) [Suspect]
     Active Substance: HUMAN IMMUNOGLOBULIN G
     Indication: OPTIC NEUROPATHY
  15. METHYLPREDNISOLONE. [Suspect]
     Active Substance: METHYLPREDNISOLONE
     Indication: IMMUNOSUPPRESSANT DRUG THERAPY
     Dosage: 1 GRAM, QD
     Route: 042
  16. DOXYCYCLINE. [Suspect]
     Active Substance: DOXYCYCLINE
     Indication: NEUROSYPHILIS
     Dosage: 100 MILLIGRAM
     Route: 048
  17. DOXYCYCLINE. [Suspect]
     Active Substance: DOXYCYCLINE
     Indication: OPTIC NEUROPATHY
  18. CLOPIDOGREL [Concomitant]
     Active Substance: CLOPIDOGREL BISULFATE
     Indication: PRODUCT USED FOR UNKNOWN INDICATION
     Route: 065

REACTIONS (1)
  - Drug ineffective [Unknown]

NARRATIVE: CASE EVENT DATE: 2014
